FAERS Safety Report 6758026-9 (Version None)
Quarter: 2010Q2

REPORT INFORMATION
  Report Type: 
  Country: None (occurrence: None)
  Receive Date: 20100607
  Receipt Date: 20100526
  Transmission Date: 20101027
  Serious: Yes (Hospitalization)
  Sender: FDA-Public Use
  Company Number: CA-ELI_LILLY_AND_COMPANY-CA201005007669

PATIENT
  Age: 83 Year
  Sex: Female

DRUGS (7)
  1. FORTEO [Suspect]
     Indication: OSTEOPOROSIS
     Dosage: 20 UG, DAILY (1/D)
     Dates: start: 20091118
  2. LABETALOL HCL [Concomitant]
  3. RAMIPRIL [Concomitant]
  4. HYDROCHLOROTHIAZIDE [Concomitant]
  5. CALCIUM CARBONATE [Concomitant]
  6. VITAMIN D [Concomitant]
  7. MULTI-VITAMIN [Concomitant]

REACTIONS (3)
  - ABDOMINAL PAIN [None]
  - APPENDIX DISORDER [None]
  - INJECTION SITE ERYTHEMA [None]
